FAERS Safety Report 10350796 (Version 1)
Quarter: 2014Q3

REPORT INFORMATION
  Report Type: Spontaneous
  Country: US (occurrence: US)
  Receive Date: 20140730
  Receipt Date: 20140730
  Transmission Date: 20150326
  Serious: No
  Sender: FDA-Public Use
  Company Number: US-PFIZER INC-2014208711

PATIENT
  Age: 62 Year
  Sex: Male

DRUGS (1)
  1. INLYTA [Suspect]
     Active Substance: AXITINIB
     Indication: RENAL CANCER
     Dosage: 5 MG, 1 TABLET BY MOUTH TWICE DAILY
     Route: 048
     Dates: start: 20140716

REACTIONS (3)
  - Acne [Unknown]
  - Rash macular [Unknown]
  - Dysphonia [Unknown]

NARRATIVE: CASE EVENT DATE: 201407
